FAERS Safety Report 11752982 (Version 2)
Quarter: 2016Q2

REPORT INFORMATION
  Report Type: Report from Study
  Country: US (occurrence: US)
  Receive Date: 20151119
  Receipt Date: 20160527
  Transmission Date: 20160815
  Serious: Yes (Other)
  Sender: FDA-Public Use
  Company Number: US-ROCHE-1663274

PATIENT
  Sex: Male

DRUGS (5)
  1. VEMURAFENIB [Suspect]
     Active Substance: VEMURAFENIB
     Dosage: STARTED ON 08/AUG/2013
     Route: 048
  2. CYCLOPHOSPHAMIDE. [Concomitant]
     Active Substance: CYCLOPHOSPHAMIDE
  3. IL-2 [Concomitant]
     Active Substance: ALDESLEUKIN
  4. VEMURAFENIB [Suspect]
     Active Substance: VEMURAFENIB
     Indication: METASTATIC MALIGNANT MELANOMA
     Route: 048
  5. FLUDARABINE [Concomitant]
     Active Substance: FLUDARABINE PHOSPHATE

REACTIONS (9)
  - Hypertension [Recovered/Resolved]
  - Hypotension [Recovered/Resolved with Sequelae]
  - Platelet count decreased [Recovered/Resolved]
  - Neutrophil count decreased [Recovered/Resolved]
  - White blood cell count decreased [Recovered/Resolved]
  - Pulmonary oedema [Recovered/Resolved]
  - Neoplasm [Recovered/Resolved]
  - Hypophosphataemia [Recovered/Resolved]
  - Lymphocyte count decreased [Recovered/Resolved]

NARRATIVE: CASE EVENT DATE: 20130717
